FAERS Safety Report 12973225 (Version 2)
Quarter: 2017Q1

REPORT INFORMATION
  Report Type: Report from Study
  Country: None (occurrence: US)
  Receive Date: 20161124
  Receipt Date: 20170203
  Transmission Date: 20170428
  Serious: Yes (Other)
  Sender: FDA-Public Use
  Company Number: US-ABBVIE-16K-163-1770684-00

PATIENT
  Sex: Male

DRUGS (2)
  1. HUMIRA [Suspect]
     Active Substance: ADALIMUMAB
     Route: 058
     Dates: start: 20161112
  2. HUMIRA [Suspect]
     Active Substance: ADALIMUMAB
     Indication: RHEUMATOID ARTHRITIS
     Route: 058
     Dates: start: 20160124, end: 2016

REACTIONS (9)
  - Gait disturbance [Unknown]
  - Joint swelling [Unknown]
  - Infection [Unknown]
  - Hip arthroplasty [Unknown]
  - Hip arthroplasty [Unknown]
  - Arthralgia [Unknown]
  - Joint stiffness [Unknown]
  - Post procedural complication [Unknown]
  - Device dislocation [Unknown]

NARRATIVE: CASE EVENT DATE: 2016
